FAERS Safety Report 7750249-5 (Version None)
Quarter: 2011Q3

REPORT INFORMATION
  Report Type: 
  Country: None (occurrence: None)
  Receive Date: 20110914
  Receipt Date: 20110907
  Transmission Date: 20111222
  Serious: Yes (Death, Other)
  Sender: FDA-Public Use
  Company Number: MX-SANOFI-AVENTIS-2011SA057806

PATIENT
  Age: 62 Year
  Sex: Male

DRUGS (3)
  1. INSULIN GLARGINE [Suspect]
     Indication: TYPE 2 DIABETES MELLITUS
     Route: 058
     Dates: start: 20070101, end: 20110905
  2. AMLODIPINE [Concomitant]
     Route: 048
     Dates: start: 20070101, end: 20110905
  3. CAPTOPRIL [Concomitant]
     Route: 048
     Dates: start: 20070101, end: 20110905

REACTIONS (2)
  - DEATH [None]
  - RENAL FAILURE [None]
